FAERS Safety Report 24889610 (Version 3)
Quarter: 2025Q3

REPORT INFORMATION
  Report Type: Spontaneous
  Country: US (occurrence: US)
  Receive Date: 20250127
  Receipt Date: 20250917
  Transmission Date: 20251021
  Serious: No
  Sender: BIOGEN
  Company Number: US-BIOGEN-2023BI01231413

PATIENT
  Age: 45 Year
  Sex: Male

DRUGS (5)
  1. TYSABRI [Suspect]
     Active Substance: NATALIZUMAB
     Indication: Multiple sclerosis
     Route: 050
     Dates: start: 20210201, end: 20231126
  2. TYSABRI [Suspect]
     Active Substance: NATALIZUMAB
     Route: 050
     Dates: start: 20200722, end: 20201209
  3. TYSABRI [Suspect]
     Active Substance: NATALIZUMAB
     Route: 050
  4. TYSABRI [Suspect]
     Active Substance: NATALIZUMAB
     Route: 050
     Dates: start: 20250203
  5. TYSABRI [Suspect]
     Active Substance: NATALIZUMAB
     Route: 050

REACTIONS (7)
  - Prescribed underdose [Recovered/Resolved]
  - Lethargy [Unknown]
  - Malaise [Unknown]
  - Feeling abnormal [Unknown]
  - Poor quality sleep [Unknown]
  - Pruritus [Unknown]
  - Vertigo [Unknown]

NARRATIVE: CASE EVENT DATE: 20231015
